FAERS Safety Report 14552598 (Version 1)
Quarter: 2018Q1

REPORT INFORMATION
  Report Type: Spontaneous
  Country: US (occurrence: US)
  Receive Date: 20180216
  Receipt Date: 20180216
  Transmission Date: 20180509
  Serious: Yes (Hospitalization)
  Sender: FDA-Public Use
  Company Number: None

PATIENT
  Age: 33 Year
  Sex: Male

DRUGS (20)
  1. MUPIROCIN. [Concomitant]
     Active Substance: MUPIROCIN
  2. VENTOLIN [Concomitant]
     Active Substance: ALBUTEROL SULFATE
  3. ACTIGALL [Concomitant]
     Active Substance: URSODIOL
  4. PAXIL [Concomitant]
     Active Substance: PAROXETINE HYDROCHLORIDE
  5. CREON [Concomitant]
     Active Substance: PANCRELIPASE AMYLASE\PANCRELIPASE LIPASE\PANCRELIPASE PROTEASE
  6. VITAMIN B12 [Concomitant]
     Active Substance: CYANOCOBALAMIN
  7. ORKAMBI [Concomitant]
     Active Substance: IVACAFTOR\LUMACAFTOR
  8. AZITHROMYCIN ANHYDROUS. [Concomitant]
     Active Substance: AZITHROMYCIN ANHYDROUS
  9. PRILOSEC [Concomitant]
     Active Substance: OMEPRAZOLE MAGNESIUM
  10. TOBRAMYCIN. [Concomitant]
     Active Substance: TOBRAMYCIN
  11. MOMETASONE [Concomitant]
     Active Substance: MOMETASONE
  12. PULMOZYME [Suspect]
     Active Substance: DORNASE ALFA
     Indication: CYSTIC FIBROSIS
     Dosage: 2.5 ML QD INH VIA NEBULIZER
     Route: 055
     Dates: start: 20140313
  13. SINGULAIR [Concomitant]
     Active Substance: MONTELUKAST SODIUM
  14. SLOW MAGNESIUM W/ CALCIUM [Concomitant]
  15. ALBUTEROL. [Concomitant]
     Active Substance: ALBUTEROL
  16. POTASSIUM CITRATE. [Concomitant]
     Active Substance: POTASSIUM CITRATE
  17. SALINE [Concomitant]
     Active Substance: SODIUM CHLORIDE
  18. CYMBALTA [Concomitant]
     Active Substance: DULOXETINE HYDROCHLORIDE
  19. FLOMAX [Concomitant]
     Active Substance: TAMSULOSIN HYDROCHLORIDE
  20. AQUADEKS [Concomitant]
     Active Substance: MINERALS\VITAMINS

REACTIONS (2)
  - Influenza [None]
  - Drug dose omission [None]
